FAERS Safety Report 18785046 (Version 2)
Quarter: 2021Q1

REPORT INFORMATION
  Report Type: Spontaneous
  Country: AD (occurrence: AD)
  Receive Date: 20210125
  Receipt Date: 20210127
  Transmission Date: 20210419
  Serious: Yes (Other)
  Sender: FDA-Public Use
  Company Number: AD-BAYER-2021-030646

PATIENT
  Sex: Female

DRUGS (1)
  1. LEVONORGESTREL (LCS, 12?G/D, 28X28) [Suspect]
     Active Substance: LEVONORGESTREL
     Dosage: 14 ?G PER DAY CONTINUOUSLY
     Route: 015

REACTIONS (3)
  - Hypotension [None]
  - Autonomic nervous system imbalance [None]
  - Syncope [None]
